FAERS Safety Report 16819244 (Version 1)
Quarter: 2019Q3

REPORT INFORMATION
  Report Type: Spontaneous
  Country: FR (occurrence: FR)
  Receive Date: 20190917
  Receipt Date: 20190917
  Transmission Date: 20191005
  Serious: Yes (Life-Threatening, Other)
  Sender: FDA-Public Use
  Company Number: FR-MYLANLABS-2019M1084096

PATIENT
  Age: 61 Year
  Sex: Female
  Weight: 50 kg

DRUGS (3)
  1. METRONIDAZOLE. [Suspect]
     Active Substance: METRONIDAZOLE
     Indication: INFECTIOUS PLEURAL EFFUSION
     Dosage: 1500 MILLIGRAM, QD
     Route: 042
     Dates: start: 20190205, end: 20190314
  2. VORICONAZOLE. [Suspect]
     Active Substance: VORICONAZOLE
     Indication: INFECTIOUS PLEURAL EFFUSION
     Dosage: 400 MILLIGRAM, QD
     Route: 048
     Dates: start: 20190128, end: 20190314
  3. CEFEPIME [Suspect]
     Active Substance: CEFEPIME HYDROCHLORIDE
     Indication: INFECTIOUS PLEURAL EFFUSION
     Dosage: 6 GRAM, QD
     Route: 042
     Dates: start: 20190130, end: 20190314

REACTIONS (2)
  - Febrile neutropenia [Recovered/Resolved]
  - Off label use [Unknown]

NARRATIVE: CASE EVENT DATE: 20190313
